FAERS Safety Report 8650202 (Version 3)
Quarter: 2012Q4

REPORT INFORMATION
  Report Type: 
  Country: NL (occurrence: NL)
  Receive Date: 20120705
  Receipt Date: 20121114
  Transmission Date: 20130627
  Serious: Yes (Hospitalization)
  Sender: FDA-Public Use
  Company Number: NL-SANOFI-AVENTIS-2012SA046438

PATIENT
  Age: 58 Year
  Sex: Female

DRUGS (4)
  1. TAXOTERE [Suspect]
     Indication: BREAST CARCINOMA
     Route: 042
     Dates: start: 20120626
  2. ADRIAMYCIN [Concomitant]
     Indication: BREAST CARCINOMA
  3. CYCLOPHOSPHAMIDE [Concomitant]
     Indication: BREAST CARCINOMA
  4. PEGFILGRASTIM [Concomitant]

REACTIONS (2)
  - Pancreatitis [Recovering/Resolving]
  - Lipase increased [Recovering/Resolving]
